FAERS Safety Report 20325331 (Version 1)
Quarter: 2022Q1

REPORT INFORMATION
  Report Type: Spontaneous
  Country: ES (occurrence: ES)
  Receive Date: 20220112
  Receipt Date: 20220112
  Transmission Date: 20220424
  Serious: Yes (Life-Threatening, Hospitalization, Other)
  Sender: FDA-Public Use
  Company Number: ES-AEMPS-1078098

PATIENT
  Age: 62 Year
  Sex: Male
  Weight: 225 kg

DRUGS (3)
  1. ALPRAZOLAM [Interacting]
     Active Substance: ALPRAZOLAM
     Indication: Product used for unknown indication
     Dosage: 1 MILLIGRAM, TWO TIMES A DAY 1-0-1)
     Route: 048
     Dates: start: 20210816, end: 20211221
  2. METHADONE HYDROCHLORIDE [Interacting]
     Active Substance: METHADONE HYDROCHLORIDE
     Indication: Product used for unknown indication
     Dosage: 85 MILLIGRAM, ONCE A DAY (1-0-0)
     Route: 048
     Dates: start: 2021
  3. LORAZEPAM [Interacting]
     Active Substance: LORAZEPAM
     Indication: Product used for unknown indication
     Dosage: 1 MILLIGRAM, ONCE A DAY (0-0-1)
     Route: 048
     Dates: start: 20201202

REACTIONS (3)
  - Pneumonia aspiration [Recovered/Resolved]
  - Acute respiratory failure [Recovered/Resolved]
  - Depressed level of consciousness [Recovered/Resolved]

NARRATIVE: CASE EVENT DATE: 20211104
